FAERS Safety Report 19444099 (Version 2)
Quarter: 2021Q3

REPORT INFORMATION
  Report Type: Spontaneous
  Country: US (occurrence: US)
  Receive Date: 20210621
  Receipt Date: 20210809
  Transmission Date: 20211014
  Serious: No
  Sender: FDA-Public Use
  Company Number: US-BAYER-2021-160951

PATIENT
  Age: 67 Year
  Sex: Female

DRUGS (1)
  1. ESTRADIOL. [Suspect]
     Active Substance: ESTRADIOL
     Dosage: 0.075MG
     Route: 062
     Dates: start: 202006

REACTIONS (7)
  - Intentional product use issue [None]
  - Application site rash [None]
  - Device material issue [None]
  - Application site haemorrhage [None]
  - Application site irritation [None]
  - Application site pruritus [None]
  - Product size issue [None]

NARRATIVE: CASE EVENT DATE: 202006
